FAERS Safety Report 24725781 (Version 1)
Quarter: 2024Q4

REPORT INFORMATION
  Report Type: Spontaneous
  Country: US (occurrence: US)
  Receive Date: 20241212
  Receipt Date: 20241212
  Transmission Date: 20250114
  Serious: No
  Sender: SANDOZ
  Company Number: US-002147023-NVSC2024US117862

PATIENT
  Age: 63 Year
  Sex: Female

DRUGS (21)
  1. EZETIMIBE [Suspect]
     Active Substance: EZETIMIBE
     Indication: Product used for unknown indication
     Dosage: UNK
     Route: 065
  2. LEQVIO [Suspect]
     Active Substance: INCLISIRAN SODIUM
     Indication: Hypercholesterolaemia
     Dosage: 284 MG
     Route: 058
     Dates: start: 20240216, end: 20241119
  3. LEQVIO [Suspect]
     Active Substance: INCLISIRAN SODIUM
     Indication: Product used for unknown indication
     Dosage: UNK
     Route: 065
  4. CRESTOR [Concomitant]
     Active Substance: ROSUVASTATIN CALCIUM
     Indication: Product used for unknown indication
     Dosage: TAKE 1 TABLET (40 MG) BY MOUTH DAILY REFILLS: 3
     Route: 048
     Dates: start: 20231219
  5. CRESTOR [Concomitant]
     Active Substance: ROSUVASTATIN CALCIUM
     Dosage: TAKE 1 TABLET 10 MG DAILY DISPENSE: 90 TABLET REFILL: 3
     Route: 048
  6. ESTRACE [Concomitant]
     Active Substance: ESTRADIOL
     Indication: Product used for unknown indication
     Dosage: 2 G, BIW (0.1 MG/GM VAGINAL CREAM) REFILLS:3
     Route: 067
     Dates: start: 20240101
  7. IMITREX [Concomitant]
     Active Substance: SUMATRIPTAN SUCCINATE
     Dosage: 100 MTAKE 1 TABLET (100 MG) BY MOUTH REFILL: 3
     Route: 048
     Dates: start: 20230427, end: 20231229
  8. IMITREX [Concomitant]
     Active Substance: SUMATRIPTAN SUCCINATE
     Indication: Headache
     Dosage: TAKE 1 TABLET (100 MG) BY MOUTH
     Route: 048
     Dates: start: 20231229
  9. IMITREX [Concomitant]
     Active Substance: SUMATRIPTAN SUCCINATE
     Dosage: TAKE 1 TABLET (100 MG) BY MOUTH  DISPENSE: 27 TABLET, REFILL: 3
     Route: 048
  10. IMITREX [Concomitant]
     Active Substance: SUMATRIPTAN SUCCINATE
     Dosage: INJECT 0.5 MLS (6 MG) SUBCUTANEOUS REFILL: 3
     Route: 058
     Dates: start: 20230424, end: 20231229
  11. IMITREX [Concomitant]
     Active Substance: SUMATRIPTAN SUCCINATE
     Indication: Headache
     Dosage: INJECTOR KIT INJECT 0.5 MLS (6 MG) SUBCUTANEOUS
     Route: 058
     Dates: start: 20231229, end: 20240717
  12. IMITREX [Concomitant]
     Active Substance: SUMATRIPTAN SUCCINATE
     Dosage: INJECTOR KIT INJECT 0.5 MLS (6 MG) SUBCUTANEOUS DISPENSE: 18 KIT REFILL: 3
     Route: 058
  13. KENALOG [Concomitant]
     Active Substance: TRIAMCINOLONE ACETONIDE
     Indication: Product used for unknown indication
     Dosage: APPLY TOPICALLY 2 TIMES DAILY
     Route: 061
     Dates: start: 20231229, end: 20240909
  14. KENALOG [Concomitant]
     Active Substance: TRIAMCINOLONE ACETONIDE
     Dosage: APPLY TOPICALLY 2 TIMES DAILY DISPENSE: 85.2 G REFILL: 0
     Route: 061
  15. KENALOG [Concomitant]
     Active Substance: TRIAMCINOLONE ACETONIDE
     Dosage: APPLY TOPICALLY 2 TIMES DAILY REFILL: 0
     Route: 061
     Dates: start: 20220316, end: 20231229
  16. LEQVIO [Concomitant]
     Active Substance: INCLISIRAN SODIUM
     Indication: Product used for unknown indication
     Dosage: 284 MG EVERY 3 MONTHS
     Route: 058
     Dates: start: 20240102, end: 20240629
  17. REPATHA [Concomitant]
     Active Substance: EVOLOCUMAB
     Indication: Product used for unknown indication
     Dosage: INJECT 1 ML (140 MG) SUBCUTANEOUS EVERY 14 DAYS DISPENSE: 6 ML, REFILL: 3
     Route: 058
  18. REPATHA [Concomitant]
     Active Substance: EVOLOCUMAB
     Dosage: INJECT 1 ML (140 MG) SUBCUTANEOUS EVERY 14 DAYS REFILL: 3
     Route: 058
     Dates: start: 20230628, end: 20240216
  19. SODIUM FLUORIDE [Concomitant]
     Active Substance: SODIUM FLUORIDE
     Indication: Product used for unknown indication
     Dosage: BRUSH 1-2 TIMES DAILY AND BEFORE BED. EXPECTORATE + DO NOT RINSE WITH WATER.
     Route: 065
     Dates: start: 20231012
  20. ZETIA [Concomitant]
     Active Substance: EZETIMIBE
     Indication: Product used for unknown indication
     Dosage: TAKE 1 TABLET (10 MG) BY MOUTH DAILY REFILLS: 3
     Route: 048
     Dates: start: 20231219
  21. ZETIA [Concomitant]
     Active Substance: EZETIMIBE
     Dosage: TAKE 1 TABLET 10 MG DAILY DISPENSE: 90 TABLET REFILL: 3
     Route: 048

REACTIONS (5)
  - Panic attack [Unknown]
  - Tachycardia [Unknown]
  - Palpitations [Unknown]
  - Blood cholesterol increased [Not Recovered/Not Resolved]
  - Drug ineffective [Unknown]

NARRATIVE: CASE EVENT DATE: 20240514
